FAERS Safety Report 10228759 (Version 1)
Quarter: 2014Q2

REPORT INFORMATION
  Report Type: Spontaneous
  Country: DE (occurrence: DE)
  Receive Date: 20140610
  Receipt Date: 20140610
  Transmission Date: 20141212
  Serious: Yes (Death, Hospitalization, Other)
  Sender: FDA-Public Use
  Company Number: DE-ELI_LILLY_AND_COMPANY-DE201406001559

PATIENT
  Age: 74 Year
  Sex: Female

DRUGS (9)
  1. ZYPREXA VELOTAB [Suspect]
     Indication: PRODUCT USED FOR UNKNOWN INDICATION
     Dosage: 15 MG, QD
     Route: 048
     Dates: start: 201301, end: 20140310
  2. ZYPREXA VELOTAB [Suspect]
     Dosage: 5 MG, QD
     Route: 048
     Dates: start: 20140307, end: 20140309
  3. ZYPREXA VELOTAB [Suspect]
     Dosage: 10 MG, QD
     Route: 048
     Dates: start: 20140310, end: 20140310
  4. TAVOR [Concomitant]
     Dosage: 1 DF, QD
     Route: 048
     Dates: start: 201301
  5. TAVOR [Concomitant]
     Dosage: 3 MG, QD
     Route: 048
     Dates: start: 20140304, end: 20140311
  6. TAVOR [Concomitant]
     Dosage: 4 MG, QD
     Route: 048
     Dates: start: 20140312, end: 20140320
  7. THYROXIN [Concomitant]
     Indication: PRODUCT USED FOR UNKNOWN INDICATION
     Dosage: 100 UG, QD
     Route: 048
     Dates: start: 20140320
  8. METFORMIN [Concomitant]
     Indication: PRODUCT USED FOR UNKNOWN INDICATION
     Dosage: 1000 MG, QD
     Route: 048
     Dates: start: 20140320
  9. RAMIPRIL [Concomitant]
     Indication: PRODUCT USED FOR UNKNOWN INDICATION
     Dosage: 5 MG, UNK
     Route: 048
     Dates: end: 20140320

REACTIONS (6)
  - Death [Fatal]
  - Acute myocardial infarction [Unknown]
  - Pleurothotonus [Recovered/Resolved]
  - Blood creatine phosphokinase increased [Recovering/Resolving]
  - Hepatic enzyme increased [Unknown]
  - Urinary tract infection [Unknown]
